FAERS Safety Report 9548697 (Version 1)
Quarter: 2013Q3

REPORT INFORMATION
  Report Type: Spontaneous
  Country: US (occurrence: None)
  Receive Date: 20130724
  Receipt Date: 20130724
  Transmission Date: 20140515
  Serious: Yes (Other)
  Sender: FDA-Public Use
  Company Number: PHEH2013US008792

PATIENT
  Age: 45 Year
  Sex: Female

DRUGS (1)
  1. FANAPT (ILOPERIDONE) UNKNOWN [Suspect]
     Indication: SCHIZOPHRENIA
     Route: 048

REACTIONS (1)
  - Tachycardia [None]
